FAERS Safety Report 13013808 (Version 1)
Quarter: 2016Q4

REPORT INFORMATION
  Report Type: Spontaneous
  Country: DK (occurrence: DK)
  Receive Date: 20161209
  Receipt Date: 20161209
  Transmission Date: 20170207
  Serious: Yes (Life-Threatening, Hospitalization, Other)
  Sender: FDA-Public Use
  Company Number: DK-BAYER-2016-228992

PATIENT
  Age: 69 Year
  Sex: Male

DRUGS (1)
  1. ACETYLSALICYLIC ACID (} 100 MG) [Suspect]
     Active Substance: ASPIRIN
     Dosage: UNK

REACTIONS (4)
  - Colitis microscopic [None]
  - Hypokalaemia [None]
  - Diarrhoea [None]
  - Cardiac arrest [Recovered/Resolved]
